FAERS Safety Report 9550443 (Version 1)
Quarter: 2013Q3

REPORT INFORMATION
  Report Type: Spontaneous
  Country: US (occurrence: US)
  Receive Date: 20130924
  Receipt Date: 20130924
  Transmission Date: 20140515
  Serious: No
  Sender: FDA-Public Use
  Company Number: US-SANOFI-AVENTIS-2013SA078313

PATIENT
  Age: 67 Year
  Sex: Male

DRUGS (5)
  1. AUBAGIO [Suspect]
     Indication: MULTIPLE SCLEROSIS
     Route: 048
     Dates: start: 20130221
  2. BACLOFEN [Concomitant]
  3. VITAMIN D [Concomitant]
     Dosage: DOSE:2000 UNIT(S)
  4. FISH OIL [Concomitant]
  5. MULTIVITAMINS [Concomitant]

REACTIONS (2)
  - Sunburn [Unknown]
  - Skin exfoliation [Recovered/Resolved]
